FAERS Safety Report 8195564-9 (Version None)
Quarter: 2012Q1

REPORT INFORMATION
  Report Type: 
  Country: None (occurrence: None)
  Receive Date: 20120308
  Receipt Date: 20120307
  Transmission Date: 20120608
  Serious: Yes (Death, Hospitalization)
  Sender: FDA-Public Use
  Company Number: PHHY2011NL113632

PATIENT
  Sex: Male

DRUGS (9)
  1. TURBO INHALER [Concomitant]
     Dosage: UNK
  2. ZOMETA [Suspect]
     Indication: PROSTATE CANCER METASTATIC
     Dosage: 4MG/5ML ONCE PER 42 DAYS
     Route: 042
     Dates: start: 20111012
  3. ZOMETA [Suspect]
     Dosage: 4MG/5ML
     Dates: start: 20120101
  4. CALC CHEW [Concomitant]
     Dosage: UNK UKN, UNK
  5. ANDROCUR [Concomitant]
     Dosage: 150 MG, UNK
     Dates: start: 20111213
  6. ZOMETA [Suspect]
     Dosage: 4MG/5ML ONCE PER 42 DAYS
     Route: 042
     Dates: start: 20111125
  7. DIOVAN HCT [Concomitant]
     Dosage: UNK
  8. PANTOPRAZOLE [Concomitant]
     Dosage: UNK UKN, UNK
  9. VITAMIN D [Concomitant]
     Dosage: UNK
     Dates: start: 20111001

REACTIONS (2)
  - HYPOCALCAEMIA [None]
  - PNEUMONIA [None]
